FAERS Safety Report 12696979 (Version 3)
Quarter: 2016Q3

REPORT INFORMATION
  Report Type: Report from Study
  Country: JP (occurrence: JP)
  Receive Date: 20160830
  Receipt Date: 20160928
  Transmission Date: 20161109
  Serious: Yes (Life-Threatening, Hospitalization, Other)
  Sender: FDA-Public Use
  Company Number: JP-SUN PHARMACEUTICAL INDUSTRIES LTD-2016R1-122802

PATIENT
  Age: 75 Year
  Sex: Female

DRUGS (2)
  1. PREGABALIN. [Interacting]
     Active Substance: PREGABALIN
     Indication: BACK PAIN
     Dosage: 75 MG, BID
     Route: 065
  2. AZITHROMYCIN ANHYDROUS. [Suspect]
     Active Substance: AZITHROMYCIN ANHYDROUS
     Indication: BRONCHITIS
     Dosage: 500 MG, SINGLE
     Route: 065

REACTIONS (3)
  - Purpura [Recovered/Resolved]
  - Drug interaction [Unknown]
  - Rhabdomyolysis [Recovered/Resolved]
